FAERS Safety Report 18180471 (Version 2)
Quarter: 2021Q2

REPORT INFORMATION
  Report Type: Spontaneous
  Country: US (occurrence: US)
  Receive Date: 20200821
  Receipt Date: 20210511
  Transmission Date: 20210717
  Serious: Yes (Other)
  Sender: FDA-Public Use
  Company Number: US-PFIZER INC-2020009485

PATIENT
  Age: 72 Year
  Sex: Female
  Weight: 58.5 kg

DRUGS (3)
  1. PREMARIN [Suspect]
     Active Substance: ESTROGENS, CONJUGATED
     Dosage: 0.5 G, 2X/WEEK
  2. PREMARIN [Suspect]
     Active Substance: ESTROGENS, CONJUGATED
     Indication: VAGINAL INFECTION
     Dosage: UNK, AS NEEDED (ONE APPLICATION AT NIGHT AS NEEDED)
     Route: 067
     Dates: start: 20200105
  3. PREMARIN [Suspect]
     Active Substance: ESTROGENS, CONJUGATED
     Indication: ATROPHIC VULVOVAGINITIS
     Dosage: 0.5 G, UNK (1/2GM BY VAGINAL ROUTE 24 WK)
     Route: 067

REACTIONS (5)
  - Off label use [Unknown]
  - Product use issue [Unknown]
  - Expired product administered [Unknown]
  - Mental impairment [Unknown]
  - Intentional product misuse [Unknown]
